FAERS Safety Report 17296861 (Version 3)
Quarter: 2020Q1

REPORT INFORMATION
  Report Type: Spontaneous
  Country: US (occurrence: US)
  Receive Date: 20200121
  Receipt Date: 20200210
  Transmission Date: 20200409
  Serious: No
  Sender: FDA-Public Use
  Company Number: US-AMGEN INC.-USASP2020008842

PATIENT
  Age: 69 Year
  Sex: Female
  Weight: 71 kg

DRUGS (14)
  1. ELIQUIS [Concomitant]
     Active Substance: APIXABAN
     Dosage: 5 MILLIGRAM, Q12H
     Route: 048
  2. AIMOVIG [Suspect]
     Active Substance: ERENUMAB-AOOE
     Indication: MIGRAINE
     Dosage: 140 MILLIGRAM, QMO
     Route: 058
     Dates: start: 2019
  3. LYRICA [Concomitant]
     Active Substance: PREGABALIN
     Dosage: 25 MILLIGRAM, QHS
     Route: 048
  4. PROGRAF [Concomitant]
     Active Substance: TACROLIMUS
     Dosage: 1 MILLIGRAM, BID
     Route: 048
  5. BISACODYL. [Concomitant]
     Active Substance: BISACODYL
     Dosage: UNK (EVERY OTHER DAY)
     Route: 048
  6. INDERAL [Concomitant]
     Active Substance: PROPRANOLOL HYDROCHLORIDE
     Dosage: 10 MILLIGRAM, BID
     Route: 048
  7. MAGNESIUM [Concomitant]
     Active Substance: MAGNESIUM
     Dosage: 250 MILLIGRAM, QD
     Route: 048
  8. CALCIUM 600 + D [Concomitant]
     Active Substance: CALCIUM\VITAMIN D
     Dosage: UNK UNK, QD (600 TO 400 MG)
     Route: 048
  9. PROTONIX [Concomitant]
     Active Substance: PANTOPRAZOLE SODIUM
     Dosage: 40 MILLIGRAM, QD
     Route: 048
  10. BENADRYL [Concomitant]
     Active Substance: DIPHENHYDRAMINE HYDROCHLORIDE
     Indication: PRURITUS
     Dosage: 25 MILLIGRAM (EVERY OTHER DAY)
     Route: 048
  11. TYLENOL [Concomitant]
     Active Substance: ACETAMINOPHEN
     Indication: HEADACHE
     Dosage: 500 MILLIGRAM, AS NECESSARY
     Route: 048
  12. ZOLOFT [Concomitant]
     Active Substance: SERTRALINE HYDROCHLORIDE
     Dosage: 100 MILLIGRAM, QD
     Route: 048
  13. DELTASONE [PREDNISOLONE] [Concomitant]
     Dosage: 5 MILLIGRAM, QD
     Route: 048
  14. ACTIGALL [Concomitant]
     Active Substance: URSODIOL
     Dosage: 500 MILLIGRAM, BID
     Route: 048

REACTIONS (1)
  - Device issue [Unknown]

NARRATIVE: CASE EVENT DATE: 201912
